FAERS Safety Report 10065593 (Version 1)
Quarter: 2014Q2

REPORT INFORMATION
  Report Type: Spontaneous
  Country: US (occurrence: None)
  Receive Date: 20140401
  Receipt Date: 20140401
  Transmission Date: 20141212
  Serious: Yes (Other)
  Sender: FDA-Public Use
  Company Number: PHEH2013US017541

PATIENT
  Age: 82 Year
  Sex: Female

DRUGS (9)
  1. EXELON PATCH [Suspect]
     Route: 062
  2. NAMENDA (MEMANTINE HYDROCHLORIDE) [Concomitant]
  3. VITAMIN B12 (CYANOCOBALAMIN) [Concomitant]
  4. LISINOPRIL [Concomitant]
  5. PROBIOTIC (BIFIDOBACTERIUM INFANTIS, LACTOBACILLUS ACIDOPHILUS) [Concomitant]
  6. VENLAFAXINE [Concomitant]
  7. LEXAPRO (ESCITALOPRAM OXALATE) [Concomitant]
  8. BABY ASPIRIN (ACETYLSALICYLIC ACID) [Concomitant]
  9. SIMVASTATIN [Concomitant]

REACTIONS (2)
  - Weight decreased [None]
  - Oesophageal disorder [None]
